FAERS Safety Report 8019745-X (Version None)
Quarter: 2012Q1

REPORT INFORMATION
  Report Type: 
  Country: None (occurrence: None)
  Receive Date: 20120103
  Receipt Date: 20111220
  Transmission Date: 20120608
  Serious: Yes (Other)
  Sender: FDA-Public Use
  Company Number: GB-GLAXOSMITHKLINE-B0770964A

PATIENT
  Age: 35 Year
  Sex: Female

DRUGS (2)
  1. CARBAMAZEPINE [Suspect]
     Indication: COMPLEX PARTIAL SEIZURES
     Route: 065
  2. LAMOTRIGINE [Suspect]
     Indication: COMPLEX PARTIAL SEIZURES
     Route: 065

REACTIONS (2)
  - ADVERSE EVENT [None]
  - TOXICITY TO VARIOUS AGENTS [None]
